FAERS Safety Report 6416785-9 (Version None)
Quarter: 2009Q4

REPORT INFORMATION
  Report Type: 
  Country: None (occurrence: None)
  Receive Date: 20091022
  Receipt Date: 20091007
  Transmission Date: 20100525
  Serious: Yes (Hospitalization)
  Sender: FDA-Public Use
  Company Number: 2009002974

PATIENT
  Sex: Male

DRUGS (2)
  1. TARCEVA [Suspect]
     Indication: NON-SMALL CELL LUNG CANCER STAGE IIIA
     Dosage: (150 MG, QD), ORAL
     Route: 048
     Dates: start: 20090706, end: 20090918
  2. COMBIVENT [Concomitant]

REACTIONS (2)
  - FATIGUE [None]
  - PANCYTOPENIA [None]
